FAERS Safety Report 24692218 (Version 1)
Quarter: 2024Q4

REPORT INFORMATION
  Report Type: Spontaneous
  Country: US (occurrence: US)
  Receive Date: 20241203
  Receipt Date: 20241203
  Transmission Date: 20250114
  Serious: No
  Sender: ABBVIE
  Company Number: US-ABBVIE-6023234

PATIENT

DRUGS (1)
  1. HUMIRA [Suspect]
     Active Substance: ADALIMUMAB
     Indication: Psoriatic arthropathy
     Route: 058

REACTIONS (9)
  - Haematocrit abnormal [Unknown]
  - Hepatic enzyme increased [Unknown]
  - Skin exfoliation [Unknown]
  - Rash macular [Unknown]
  - Wound infection [Unknown]
  - Wound haemorrhage [Unknown]
  - Anger [Unknown]
  - Irritability [Unknown]
  - Pain [Unknown]

NARRATIVE: CASE EVENT DATE: 20240101
